FAERS Safety Report 4311492-0 (Version None)
Quarter: 2004Q1

REPORT INFORMATION
  Report Type: 
  Country: None (occurrence: None)
  Receive Date: 20040304
  Receipt Date: 20040225
  Transmission Date: 20041129
  Serious: Yes (Hospitalization)
  Sender: FDA-Public Use
  Company Number: PHBS2004TW02803

PATIENT
  Age: 58 Year
  Sex: Male

DRUGS (1)
  1. BACLOFEN [Suspect]
     Indication: ARTHRALGIA
     Dosage: 5 MG, TID
     Route: 065

REACTIONS (2)
  - DEPRESSED LEVEL OF CONSCIOUSNESS [None]
  - TOXIC INDUCED ENCEPHALOPATHY [None]
